FAERS Safety Report 10064247 (Version 1)
Quarter: 2014Q2

REPORT INFORMATION
  Report Type: Spontaneous
  Country: US (occurrence: None)
  Receive Date: 20140407
  Receipt Date: 20140407
  Transmission Date: 20141212
  Serious: Yes (Hospitalization)
  Sender: FDA-Public Use
  Company Number: None

PATIENT
  Age: 52 Year
  Sex: Female
  Weight: 45.5 kg

DRUGS (10)
  1. NATALIZUMAB [Suspect]
     Indication: MULTIPLE SCLEROSIS
     Dosage: (115ML/HR IN 100 ML NS)
     Route: 042
     Dates: start: 20111203
  2. GABAPENTIN [Concomitant]
  3. TRAZODONE [Concomitant]
  4. DIAZEPAM [Concomitant]
  5. ADDERALL [Concomitant]
  6. PROAIR HFA [Concomitant]
  7. COMBIVENT [Concomitant]
  8. SUMATRIPTAN [Concomitant]
  9. FLUOXETINE [Concomitant]
  10. CHANTIX [Concomitant]

REACTIONS (1)
  - Psychogenic seizure [None]
